FAERS Safety Report 15904325 (Version 2)
Quarter: 2019Q1

REPORT INFORMATION
  Report Type: Spontaneous
  Country: JP (occurrence: JP)
  Receive Date: 20190204
  Receipt Date: 20190307
  Transmission Date: 20190417
  Serious: Yes (Other)
  Sender: FDA-Public Use
  Company Number: JP-ROCHE-2255751

PATIENT
  Age: 82 Year
  Sex: Male

DRUGS (2)
  1. VERTEPORFIN [Suspect]
     Active Substance: VERTEPORFIN
     Indication: HAEMANGIOMA OF RETINA
     Dosage: UNK
     Route: 065
  2. LUCENTIS [Suspect]
     Active Substance: RANIBIZUMAB
     Indication: AGE-RELATED MACULAR DEGENERATION
     Dosage: UNK
     Route: 050

REACTIONS (2)
  - Visual acuity reduced [Unknown]
  - Retinal depigmentation [Unknown]
